FAERS Safety Report 9906345 (Version 1)
Quarter: 2014Q1

REPORT INFORMATION
  Report Type: Spontaneous
  Country: FR (occurrence: FR)
  Receive Date: 20140218
  Receipt Date: 20140218
  Transmission Date: 20141002
  Serious: Yes (Hospitalization)
  Sender: FDA-Public Use
  Company Number: FR-ASTRAZENECA-2014SE09502

PATIENT
  Age: 22826 Day
  Sex: Male

DRUGS (17)
  1. INEXIUM [Suspect]
     Indication: DYSPEPSIA
     Route: 048
     Dates: start: 20130617
  2. BACTRIM [Suspect]
     Indication: ANTIFUNGAL PROPHYLAXIS
     Dosage: DAILY
     Route: 048
     Dates: start: 20130617
  3. CELLCEPT [Suspect]
     Indication: PROPHYLAXIS AGAINST TRANSPLANT REJECTION
     Route: 048
     Dates: start: 20130617
  4. CELLCEPT [Suspect]
     Indication: PROPHYLAXIS AGAINST TRANSPLANT REJECTION
     Route: 048
  5. NEORAL [Concomitant]
  6. CORTANCYL [Concomitant]
  7. ROVALCYTE [Concomitant]
  8. OFLOCET [Concomitant]
  9. LASILIX [Concomitant]
  10. KARDEGIC [Concomitant]
  11. TAHOR [Concomitant]
  12. NOVONORM [Concomitant]
  13. VERATRAN [Concomitant]
  14. LEXOMIL [Concomitant]
  15. MIRCERA [Concomitant]
  16. AMLOR [Concomitant]
  17. PHOSPHONEUROS [Concomitant]

REACTIONS (1)
  - Neutropenia [Recovered/Resolved]
